FAERS Safety Report 8240582-5 (Version None)
Quarter: 2012Q1

REPORT INFORMATION
  Report Type: 
  Country: None (occurrence: None)
  Receive Date: 20120328
  Receipt Date: 20120314
  Transmission Date: 20120608
  Serious: Yes (Other)
  Sender: FDA-Public Use
  Company Number: US-ROCHE-1052834

PATIENT
  Sex: Female

DRUGS (8)
  1. ZOMETA [Suspect]
     Indication: OSTEOPENIA
  2. FOSAMAX [Suspect]
     Indication: OSTEOPOROSIS
     Dates: start: 20050701, end: 20110701
  3. BONIVA [Suspect]
     Indication: OSTEOPENIA
  4. RECLAST [Suspect]
     Indication: OSTEOPOROSIS
     Dates: start: 20050701, end: 20110701
  5. BONIVA [Suspect]
     Indication: OSTEOPOROSIS
     Dates: start: 20050701, end: 20110701
  6. RECLAST [Suspect]
     Indication: OSTEOPENIA
  7. FOSAMAX [Suspect]
     Indication: OSTEOPENIA
  8. ZOMETA [Suspect]
     Indication: OSTEOPOROSIS
     Dates: start: 20050701, end: 20110701

REACTIONS (2)
  - FEMUR FRACTURE [None]
  - EMOTIONAL DISTRESS [None]
